FAERS Safety Report 15885210 (Version 2)
Quarter: 2019Q1

REPORT INFORMATION
  Report Type: Spontaneous
  Country: US (occurrence: US)
  Receive Date: 20190129
  Receipt Date: 20190221
  Transmission Date: 20190417
  Serious: No
  Sender: FDA-Public Use
  Company Number: US-VIFOR (INTERNATIONAL) INC.-VIT-2019-00337

PATIENT
  Age: 61 Year
  Sex: Female
  Weight: 107.14 kg

DRUGS (9)
  1. OMEPRAZOLE. [Concomitant]
     Active Substance: OMEPRAZOLE
  2. METOLAZONE. [Concomitant]
     Active Substance: METOLAZONE
  3. VELTASSA [Suspect]
     Active Substance: PATIROMER
     Indication: BLOOD POTASSIUM INCREASED
     Route: 048
     Dates: start: 20190111
  4. GABAPENTIN. [Concomitant]
     Active Substance: GABAPENTIN
  5. COREG [Concomitant]
     Active Substance: CARVEDILOL
  6. HUMALOG [Concomitant]
     Active Substance: INSULIN LISPRO
  7. COREG [Concomitant]
     Active Substance: CARVEDILOL
  8. ROCEPHIN [Concomitant]
     Active Substance: CEFTRIAXONE SODIUM
  9. LANTUS [Concomitant]
     Active Substance: INSULIN GLARGINE

REACTIONS (2)
  - Product lot number issue [Unknown]
  - Migraine [Recovered/Resolved]

NARRATIVE: CASE EVENT DATE: 201901
